FAERS Safety Report 25073207 (Version 5)
Quarter: 2025Q2

REPORT INFORMATION
  Report Type: Spontaneous
  Country: US (occurrence: US)
  Receive Date: 20250313
  Receipt Date: 20250521
  Transmission Date: 20250717
  Serious: Yes (Disabling)
  Sender: SANOFI AVENTIS
  Company Number: US-SA-2025SA073237

PATIENT
  Age: 73 Year
  Sex: Female

DRUGS (6)
  1. DUPIXENT [Suspect]
     Active Substance: DUPILUMAB
     Indication: Asthma
     Route: 058
     Dates: start: 20250118, end: 20250118
  2. DUPIXENT [Suspect]
     Active Substance: DUPILUMAB
     Dosage: 300 MG, QOW
     Route: 058
     Dates: start: 2025
  3. TRELEGY ELLIPTA [Concomitant]
     Active Substance: FLUTICASONE FUROATE\UMECLIDINIUM BROMIDE\VILANTEROL TRIFENATATE
  4. PREDNISONE [Concomitant]
     Active Substance: PREDNISONE
  5. ALLEGRA [Concomitant]
     Active Substance: FEXOFENADINE HYDROCHLORIDE
  6. AZELASTINE [Concomitant]
     Active Substance: AZELASTINE

REACTIONS (5)
  - Loss of personal independence in daily activities [Unknown]
  - Asthma [Unknown]
  - Injection site pain [Unknown]
  - Injection site bruising [Unknown]
  - Needle issue [Unknown]

NARRATIVE: CASE EVENT DATE: 20250118
